FAERS Safety Report 25665702 (Version 1)
Quarter: 2025Q3

REPORT INFORMATION
  Report Type: Spontaneous
  Country: US (occurrence: US)
  Receive Date: 20250811
  Receipt Date: 20250811
  Transmission Date: 20251021
  Serious: No
  Sender: MYLAN
  Company Number: US-MYLANLABS-2025M1058188

PATIENT
  Age: 54 Year
  Sex: Male

DRUGS (2)
  1. WIXELA INHUB [Suspect]
     Active Substance: FLUTICASONE PROPIONATE\SALMETEROL XINAFOATE
     Indication: Pneumonia
     Dosage: 250/50 MICROGRAM, BID
     Dates: start: 20250705
  2. WIXELA INHUB [Suspect]
     Active Substance: FLUTICASONE PROPIONATE\SALMETEROL XINAFOATE
     Dosage: 250/50 MICROGRAM, BID
     Dates: start: 20250705

REACTIONS (3)
  - Off label use [Unknown]
  - Device malfunction [Unknown]
  - Device issue [Unknown]

NARRATIVE: CASE EVENT DATE: 20250705
